FAERS Safety Report 17723825 (Version 8)
Quarter: 2025Q1

REPORT INFORMATION
  Report Type: Spontaneous
  Country: US (occurrence: US)
  Receive Date: 20200429
  Receipt Date: 20250124
  Transmission Date: 20250409
  Serious: Yes (Other)
  Sender: SANOFI AVENTIS
  Company Number: US-SA-2020SA110390

PATIENT
  Age: 62 Year
  Sex: Male
  Weight: 91.63 kg

DRUGS (4)
  1. CAPRELSA [Suspect]
     Active Substance: VANDETANIB
     Indication: Thyroid cancer
     Dosage: 200 MG, QD
     Route: 048
     Dates: start: 20200319, end: 202003
  2. CAPRELSA [Suspect]
     Active Substance: VANDETANIB
     Dosage: 300 MG, QD
     Route: 048
     Dates: start: 20200323
  3. OMEPRAZOLE [Concomitant]
     Active Substance: OMEPRAZOLE
  4. PANTOPRAZOLE [Concomitant]
     Active Substance: PANTOPRAZOLE

REACTIONS (12)
  - Thyroid operation [Unknown]
  - Peripheral swelling [Unknown]
  - Hepatic mass [Unknown]
  - Gastrooesophageal reflux disease [Unknown]
  - Throat irritation [Unknown]
  - Eczema [Unknown]
  - Dysphagia [Unknown]
  - Rash pruritic [Unknown]
  - Radiotherapy [Unknown]
  - Hypertension [Unknown]
  - Pruritus [Unknown]
  - Acne [Unknown]
